FAERS Safety Report 23880994 (Version 4)
Quarter: 2024Q3

REPORT INFORMATION
  Report Type: Report from Study
  Country: US (occurrence: US)
  Receive Date: 20240521
  Receipt Date: 20240716
  Transmission Date: 20241016
  Serious: Yes (Death, Hospitalization, Other)
  Sender: ABBVIE
  Company Number: US-ABBVIE-5767828

PATIENT
  Sex: Female

DRUGS (5)
  1. CREON [Suspect]
     Active Substance: PANCRELIPASE AMYLASE\PANCRELIPASE LIPASE\PANCRELIPASE PROTEASE
     Indication: Product used for unknown indication
     Dosage: FORM STRENGTH: 36000 UNIT?FREQUENCY : 2-3 CAPS WITH MEAL AND 1-2 WITH SNACK
     Route: 048
     Dates: start: 202201
  2. VERZENIO [Concomitant]
     Active Substance: ABEMACICLIB
     Indication: Pancreatic neoplasm
  3. ELIQUIS [Suspect]
     Active Substance: APIXABAN
     Indication: Anticoagulant therapy
     Route: 065
  4. MEKINIST [Concomitant]
     Active Substance: TRAMETINIB DIMETHYL SULFOXIDE
     Indication: Pancreatic neoplasm
  5. INSULIN NOS [Concomitant]
     Active Substance: INSULIN NOS
     Indication: Diabetes mellitus

REACTIONS (7)
  - Pancreatic carcinoma [Fatal]
  - Metastases to liver [Unknown]
  - Metastatic neoplasm [Unknown]
  - Metastases to lung [Unknown]
  - Epistaxis [Recovered/Resolved]
  - Post procedural complication [Not Recovered/Not Resolved]
  - Splenectomy [Unknown]

NARRATIVE: CASE EVENT DATE: 20230101
